FAERS Safety Report 7097769-7 (Version None)
Quarter: 2010Q4

REPORT INFORMATION
  Report Type: 
  Country: None (occurrence: None)
  Receive Date: 20101112
  Receipt Date: 20101101
  Transmission Date: 20110411
  Serious: Yes (Hospitalization, Other)
  Sender: FDA-Public Use
  Company Number: US-ELI_LILLY_AND_COMPANY-US201008004663

PATIENT
  Sex: Male
  Weight: 131.7 kg

DRUGS (10)
  1. BYETTA [Suspect]
     Dates: start: 20080404, end: 20080818
  2. GLUCOPHAGE [Concomitant]
     Indication: DIABETES MELLITUS
     Dosage: UNK, UNK
     Route: 048
     Dates: start: 20071002
  3. METFORMIN HCL [Concomitant]
     Indication: DIABETES MELLITUS
     Route: 048
     Dates: start: 20071002
  4. PRILOSEC [Concomitant]
     Indication: DYSPEPSIA
     Dates: start: 20071001, end: 20090401
  5. OMEPRAZOLE [Concomitant]
     Indication: DYSPEPSIA
     Dates: start: 20071001, end: 20090401
  6. TRICOR [Concomitant]
     Indication: LIPIDS
     Dates: start: 20080717
  7. HYDROCHLOROTHIAZIDE [Concomitant]
     Indication: BLOOD PRESSURE
     Dates: start: 20080513
  8. METOPROLOL [Concomitant]
     Indication: BLOOD PRESSURE
     Dates: start: 20071002
  9. LISINOPRIL [Concomitant]
     Indication: BLOOD PRESSURE
  10. ALLOPURINOL [Concomitant]
     Indication: PROPHYLAXIS
     Dates: start: 20080513

REACTIONS (7)
  - DYSPEPSIA [None]
  - GALLBLADDER DISORDER [None]
  - HEPATIC STEATOSIS [None]
  - HERNIA [None]
  - PANCREATITIS [None]
  - RENAL FAILURE [None]
  - SCAR [None]
